FAERS Safety Report 16632056 (Version 2)
Quarter: 2019Q3

REPORT INFORMATION
  Report Type: Spontaneous
  Country: JP (occurrence: JP)
  Receive Date: 20190725
  Receipt Date: 20190801
  Transmission Date: 20191004
  Serious: No
  Sender: FDA-Public Use
  Company Number: JP-TEVA-2019-JP-004598J

PATIENT
  Sex: Female

DRUGS (2)
  1. VITAMIN D PREPARATIONS [Concomitant]
     Indication: OSTEOPOROSIS
     Route: 065
     Dates: start: 201907
  2. ALENDRONATE TABLET 35MG ^TEVA^ [Suspect]
     Active Substance: ALENDRONATE SODIUM
     Indication: OSTEOPOROSIS
     Route: 048
     Dates: start: 201907

REACTIONS (1)
  - Ear pain [Unknown]

NARRATIVE: CASE EVENT DATE: 201907
